FAERS Safety Report 14297501 (Version 3)
Quarter: 2018Q1

REPORT INFORMATION
  Report Type: Spontaneous
  Country: US (occurrence: US)
  Receive Date: 20171218
  Receipt Date: 20180228
  Transmission Date: 20180509
  Serious: No
  Sender: FDA-Public Use
  Company Number: US-ASTRAZENECA-2017SF22120

PATIENT
  Sex: Male
  Weight: 59 kg

DRUGS (6)
  1. PULMICORT FLEXHALER [Suspect]
     Active Substance: BUDESONIDE
     Indication: HYPERSENSITIVITY
     Dosage: 360 UG, ONE PUFFS DAILY
     Route: 055
  2. PULMICORT FLEXHALER [Suspect]
     Active Substance: BUDESONIDE
     Indication: HYPERSENSITIVITY
     Dosage: 360 UG, TWO PUFFS, DAILY
     Route: 055
  3. PULMICORT FLEXHALER [Suspect]
     Active Substance: BUDESONIDE
     Indication: HYPERSENSITIVITY
     Dosage: 360 UG, TWO PUFFS, DAILY
     Route: 055
  4. PULMICORT FLEXHALER [Suspect]
     Active Substance: BUDESONIDE
     Indication: LUNG DISORDER
     Dosage: 360 UG, TWO PUFFS, DAILY
     Route: 055
  5. PULMICORT FLEXHALER [Suspect]
     Active Substance: BUDESONIDE
     Indication: LUNG DISORDER
     Dosage: 360 UG, ONE PUFFS DAILY
     Route: 055
  6. PULMICORT FLEXHALER [Suspect]
     Active Substance: BUDESONIDE
     Indication: LUNG DISORDER
     Dosage: 360 UG, TWO PUFFS, DAILY
     Route: 055

REACTIONS (7)
  - Productive cough [Unknown]
  - Cardiac disorder [Unknown]
  - Off label use [Unknown]
  - Intentional product misuse [Unknown]
  - Device malfunction [Unknown]
  - Product use in unapproved indication [Unknown]
  - Device failure [Unknown]
